FAERS Safety Report 9585725 (Version 4)
Quarter: 2014Q1

REPORT INFORMATION
  Report Type: Report from Study
  Country: CA (occurrence: CA)
  Receive Date: 20131003
  Receipt Date: 20140124
  Transmission Date: 20141002
  Serious: Yes (Hospitalization, Other)
  Sender: FDA-Public Use
  Company Number: CA-ALEXION PHARMACEUTICALS INC.-A201302552

PATIENT
  Age: 37 Year
  Sex: Female
  Weight: 52 kg

DRUGS (9)
  1. SOLIRIS [Suspect]
     Indication: PAROXYSMAL NOCTURNAL HAEMOGLOBINURIA
     Dosage: 600 MG, QW
     Route: 042
     Dates: start: 20130607, end: 20130628
  2. SOLIRIS [Suspect]
     Dosage: 900 MG, Q2W
     Route: 042
     Dates: start: 20130705
  3. PANTOLOC [Concomitant]
     Indication: PROPHYLAXIS
     Dosage: 40 MG, QD
     Route: 048
     Dates: start: 201305
  4. CYCLOSPORIN [Concomitant]
     Indication: IMMUNOSUPPRESSANT DRUG THERAPY
     Dosage: 15 MG, BID
     Route: 048
     Dates: start: 2006
  5. PEN-VEE-K [Concomitant]
     Indication: ANTIBIOTIC THERAPY
     Dosage: 300 MG, BID
     Route: 048
     Dates: start: 201306
  6. FOLIC ACID [Concomitant]
     Dosage: 5 MG, QD
     Route: 048
  7. LOVENOX [Concomitant]
     Dosage: 60 MG, BID
     Route: 058
     Dates: start: 201305
  8. ANTITHYMOCYTE IMMUNOGLOBULIN [Concomitant]
     Indication: APLASTIC ANAEMIA
     Dosage: UNK
     Dates: start: 2006
  9. ONDANSETRON [Concomitant]
     Indication: NAUSEA
     Dosage: 8 MG, PRN Q 8 HOURS
     Route: 048

REACTIONS (8)
  - Staphylococcal infection [Not Recovered/Not Resolved]
  - Umbilical malformation [Unknown]
  - Dehydration [Unknown]
  - Abdominal pain [Unknown]
  - Vomiting [Unknown]
  - Nausea [Unknown]
  - Headache [Unknown]
  - Arthralgia [Not Recovered/Not Resolved]
